FAERS Safety Report 10947627 (Version 2)
Quarter: 2015Q2

REPORT INFORMATION
  Report Type: Spontaneous
  Country: JP (occurrence: JP)
  Receive Date: 20150323
  Receipt Date: 20150610
  Transmission Date: 20150821
  Serious: Yes (Death, Hospitalization)
  Sender: FDA-Public Use
  Company Number: JP-MYLANLABS-2015M1009298

PATIENT

DRUGS (5)
  1. CICLOSPORIN CAPSULES 10 MG ^MYLAN^ [Suspect]
     Active Substance: CYCLOSPORINE
     Indication: BEHCET^S SYNDROME
     Route: 065
  2. INFLIXIMAB [Concomitant]
     Active Substance: INFLIXIMAB
     Indication: BEHCET^S SYNDROME
     Route: 065
  3. SULFASALAZINE. [Concomitant]
     Active Substance: SULFASALAZINE
     Indication: BEHCET^S SYNDROME
     Route: 065
  4. PREDNISOLONE TABLETS 1^HOEI^ [Suspect]
     Active Substance: PREDNISOLONE
     Dosage: 5MG/DAY
     Route: 065
  5. PREDNISOLONE TABLETS 1^HOEI^ [Suspect]
     Active Substance: PREDNISOLONE
     Indication: BEHCET^S SYNDROME
     Dosage: 40MG/DAY AND THEN TAPERED TO 5 MG/DAY
     Route: 065

REACTIONS (6)
  - Pneumonia staphylococcal [Fatal]
  - Myelodysplastic syndrome [Fatal]
  - Pneumonia [Fatal]
  - Staphylococcal sepsis [Fatal]
  - Mycobacterium avium complex infection [Fatal]
  - Alveolar proteinosis [Fatal]
